FAERS Safety Report 15902809 (Version 2)
Quarter: 2019Q1

REPORT INFORMATION
  Report Type: Spontaneous
  Country: US (occurrence: US)
  Receive Date: 20190202
  Receipt Date: 20190325
  Transmission Date: 20190417
  Serious: No
  Sender: FDA-Public Use
  Company Number: US-SHIRE-US201903599

PATIENT
  Age: 77 Year
  Sex: Male

DRUGS (1)
  1. GATTEX [Suspect]
     Active Substance: TEDUGLUTIDE\WATER
     Indication: SHORT-BOWEL SYNDROME
     Dosage: UNK
     Route: 065
     Dates: start: 20181213

REACTIONS (3)
  - Abdominal pain upper [Unknown]
  - Pruritus [Unknown]
  - Dizziness postural [Unknown]

NARRATIVE: CASE EVENT DATE: 20181213
